FAERS Safety Report 9057588 (Version 3)
Quarter: 2013Q2

REPORT INFORMATION
  Report Type: Spontaneous
  Country: US (occurrence: US)
  Receive Date: 20130204
  Receipt Date: 20130405
  Transmission Date: 20140414
  Serious: Yes (Other)
  Sender: FDA-Public Use
  Company Number: US-PFIZER INC-2013044555

PATIENT
  Age: 91 Year
  Sex: Male
  Weight: 90.7 kg

DRUGS (9)
  1. LIPITOR [Suspect]
     Indication: HYPERGLYCAEMIA
     Dosage: 20 MG, 1X/DAY QHS
     Route: 048
  2. LIPITOR [Suspect]
     Indication: CORONARY ARTERY OCCLUSION
  3. LIPITOR [Suspect]
     Indication: HYPERLIPIDAEMIA
  4. NIACIN [Concomitant]
     Indication: VITAMIN SUPPLEMENTATION
     Dosage: 500 MG, 2X/DAY
  5. BICALUTAMIDE [Concomitant]
     Dosage: 50 MG, 1X/DAY
  6. WARFARIN [Concomitant]
     Dosage: 2.5 MG, 1X/DAY
  7. AMLODIPINE [Concomitant]
     Dosage: 2.5 MG, 1X/DAY
  8. LISINOPRIL [Concomitant]
     Dosage: 20 MG, 2X/DAY
  9. DOXAZOSIN [Concomitant]
     Dosage: 4 MG, 1X/DAY QHS

REACTIONS (4)
  - Rheumatoid arthritis [Unknown]
  - Glucose tolerance impaired [Unknown]
  - Musculoskeletal pain [Not Recovered/Not Resolved]
  - Sleep disorder [Unknown]
